FAERS Safety Report 5097051-3 (Version None)
Quarter: 2006Q3

REPORT INFORMATION
  Report Type: 
  Country: None (occurrence: None)
  Receive Date: 20060901
  Receipt Date: 20060814
  Transmission Date: 20061208
  Serious: Yes (Other)
  Sender: FDA-Public Use
  Company Number: US200608002975

PATIENT
  Age: 79 Year
  Sex: Female

DRUGS (4)
  1. EVISTA [Suspect]
     Indication: PROPHYLAXIS
     Dosage: 60 MG ORAL
     Route: 048
     Dates: start: 20030101
  2. CALCIUM WITH VITAMIN D (CALCIUM PHOSPHATE, CALCIUM SODIUM LACTATE, ERG [Concomitant]
  3. ASCORBIC ACID [Concomitant]
  4. CENTRUM (MINERALS NOS, VITAMINS NOS) LIQUID [Concomitant]

REACTIONS (8)
  - ABDOMINAL PAIN UPPER [None]
  - ANOREXIA [None]
  - DIABETES MELLITUS [None]
  - EYE INFECTION [None]
  - FEELING ABNORMAL [None]
  - LUNG INFECTION [None]
  - MALAISE [None]
  - SINUSITIS [None]
